FAERS Safety Report 20892619 (Version 2)
Quarter: 2022Q2

REPORT INFORMATION
  Report Type: Other
  Country: US (occurrence: None)
  Receive Date: 20220531
  Receipt Date: 20220611
  Transmission Date: 20220720
  Serious: Yes (Other)
  Sender: FDA-Public Use
  Company Number: US-ROCHE-3102588

PATIENT
  Sex: Male

DRUGS (2)
  1. HEMLIBRA [Suspect]
     Active Substance: EMICIZUMAB-KXWH
     Indication: Haemophilia
     Dosage: INJECT 360MG (2.4ML) SUBCUTANEOUSLY EVERY 2 WEEKS (USE 2ML FROM TWO 150MG VIALS AND 0.4ML FROM ONE)
     Route: 058
  2. HEMLIBRA [Suspect]
     Active Substance: EMICIZUMAB-KXWH
     Dosage: INJECT 360MG (2.4ML) SUBCUTANEOUSLY EVERY 2 WEEKS (USE 2ML FROM TWO 150MG VIALS AND 0.4ML FROM ONE
     Route: 058

REACTIONS (2)
  - Cardiac failure [Unknown]
  - Diabetes mellitus [Unknown]
